FAERS Safety Report 8314019-1 (Version None)
Quarter: 2012Q2

REPORT INFORMATION
  Report Type: 
  Country: None (occurrence: None)
  Receive Date: 20120426
  Receipt Date: 20110808
  Transmission Date: 20120825
  Serious: Yes (Other)
  Sender: FDA-Public Use
  Company Number: US-TEVA-US023441

PATIENT
  Age: 32 Year
  Sex: Male

DRUGS (2)
  1. PROVIGIL [Suspect]
     Indication: ATTENTION DEFICIT/HYPERACTIVITY DISORDER
     Dosage: 800 MILLIGRAM;
     Route: 048
     Dates: start: 20070101
  2. PROVIGIL [Suspect]
     Route: 048

REACTIONS (1)
  - DELUSIONAL DISORDER, UNSPECIFIED TYPE [None]
